FAERS Safety Report 23485116 (Version 2)
Quarter: 2024Q1

REPORT INFORMATION
  Report Type: Spontaneous
  Country: CA (occurrence: CA)
  Receive Date: 20240206
  Receipt Date: 20240209
  Transmission Date: 20240410
  Serious: Yes (Hospitalization)
  Sender: FDA-Public Use
  Company Number: CA-SA-SAC20240202000584

PATIENT
  Age: 37 Year
  Sex: Male

DRUGS (2)
  1. ELOCTA [Suspect]
     Active Substance: EFMOROCTOCOG ALFA
     Indication: Factor VIII deficiency
     Dosage: 3000 IU / 4000 IU, PRN (AS NEEDED)
     Route: 042
     Dates: start: 202308
  2. ELOCTA [Suspect]
     Active Substance: EFMOROCTOCOG ALFA
     Indication: Factor VIII deficiency
     Dosage: 3000 IU / 4000 IU, PRN (AS NEEDED)
     Route: 042
     Dates: start: 202308

REACTIONS (3)
  - Haemorrhage [Recovered/Resolved]
  - Joint swelling [Recovered/Resolved]
  - Arthralgia [Not Recovered/Not Resolved]

NARRATIVE: CASE EVENT DATE: 20240126
